FAERS Safety Report 16234067 (Version 1)
Quarter: 2019Q2

REPORT INFORMATION
  Report Type: Spontaneous
  Country: US (occurrence: US)
  Receive Date: 20190424
  Receipt Date: 20190424
  Transmission Date: 20190711
  Serious: Yes (Disabling, Other)
  Sender: FDA-Public Use
  Company Number: US-PFIZER INC-2017013935

PATIENT
  Age: 53 Year
  Sex: Female
  Weight: 100 kg

DRUGS (3)
  1. BOSULIF [Suspect]
     Active Substance: BOSUTINIB MONOHYDRATE
     Dosage: 200 MG, 1X/DAY (TWO 100 MILLIGRAM TABLETS BY MOUTH AT NIGHT)
     Route: 048
     Dates: start: 201710
  2. BOSULIF [Suspect]
     Active Substance: BOSUTINIB MONOHYDRATE
     Indication: CHRONIC MYELOID LEUKAEMIA
     Dosage: 200 MG, DAILY (30 DAY SUPPLY, ONCE DAILY WITH FOOD)
     Route: 048
     Dates: start: 201405
  3. LEVOTHYROXINE. [Concomitant]
     Active Substance: LEVOTHYROXINE
     Indication: HYPOTHYROIDISM
     Dosage: 112 UG, DAILY
     Route: 048

REACTIONS (6)
  - Feeling abnormal [Not Recovered/Not Resolved]
  - Jaw disorder [Not Recovered/Not Resolved]
  - Fatigue [Unknown]
  - Somnolence [Not Recovered/Not Resolved]
  - Loss of consciousness [Unknown]
  - Bone pain [Unknown]

NARRATIVE: CASE EVENT DATE: 201902
